FAERS Safety Report 9403207 (Version 6)
Quarter: 2013Q4

REPORT INFORMATION
  Report Type: Spontaneous
  Country: US (occurrence: US)
  Receive Date: 20130716
  Receipt Date: 20131025
  Transmission Date: 20140711
  Serious: Yes (Hospitalization)
  Sender: FDA-Public Use
  Company Number: CHPA2013US011202

PATIENT
  Age: 80 Year
  Sex: Male

DRUGS (10)
  1. VOLTAREN GEL [Suspect]
     Indication: ARTHRITIS
     Dosage: UNK, BID
     Route: 061
     Dates: start: 2012
  2. PREDNISONE [Concomitant]
     Dosage: 5 MG, QD
     Dates: start: 1964
  3. PROBIOTICS [Concomitant]
     Dosage: UNK, BID
     Dates: start: 1964
  4. B-COMPLEX//VITAMIN B COMPLEX [Concomitant]
     Dosage: UNK, BID
     Dates: start: 1964
  5. B-12 [Concomitant]
     Dosage: 1000 MG, BID
     Dates: start: 1964
  6. MULTIVITAMINS, PLAIN [Concomitant]
     Dosage: 1 DF, QD
     Dates: start: 1964
  7. HYDROCODONE [Concomitant]
     Dosage: 500 MG, UNK
     Dates: start: 1964
  8. GABAPENTIN [Concomitant]
     Dosage: 600 MG, UNK
     Dates: start: 1964
  9. HYDROCODONE W/APAP [Concomitant]
     Dosage: 1 DF, PRN
     Dates: start: 1964
  10. GLIPIZIDE [Concomitant]
     Dosage: 10 MG, UNK
     Dates: start: 1964

REACTIONS (8)
  - Diverticulitis [Unknown]
  - Weight decreased [Unknown]
  - Bloody discharge [Unknown]
  - Malaise [Unknown]
  - Off label use [Unknown]
  - Underdose [Unknown]
  - Therapeutic response unexpected [Unknown]
  - Drug administered at inappropriate site [Unknown]
